FAERS Safety Report 7751437-4 (Version None)
Quarter: 2011Q3

REPORT INFORMATION
  Report Type: 
  Country: None (occurrence: None)
  Receive Date: 20110914
  Receipt Date: 20110831
  Transmission Date: 20111222
  Serious: Yes (Other)
  Sender: FDA-Public Use
  Company Number: PHHY2011BR78391

PATIENT
  Sex: Female

DRUGS (2)
  1. DIOVAN [Suspect]
     Indication: BLOOD PRESSURE DIASTOLIC INCREASED
     Dosage: 320 MG, (ONE TABLET DAILY)
     Route: 048
  2. SIMVASTATIN [Concomitant]
     Indication: BLOOD CHOLESTEROL INCREASED
     Dosage: 40 MG, (ONE TABLET DAILY)
     Route: 048

REACTIONS (2)
  - TYPE 2 DIABETES MELLITUS [None]
  - HYPERTENSION [None]
